FAERS Safety Report 5220758-1 (Version None)
Quarter: 2007Q1

REPORT INFORMATION
  Report Type: 
  Country: None (occurrence: None)
  Receive Date: 20070126
  Receipt Date: 20070118
  Transmission Date: 20070707
  Serious: Yes (Other)
  Sender: FDA-Public Use
  Company Number: JP-ROCHE-478444

PATIENT
  Age: 13 Year
  Sex: Male
  Weight: 32 kg

DRUGS (2)
  1. ROCEPHIN [Suspect]
     Indication: APPENDICITIS
     Route: 041
     Dates: start: 20060909, end: 20060909
  2. FLUMARIN [Concomitant]
     Dates: start: 20060909, end: 20060910

REACTIONS (1)
  - CHOLANGITIS SUPPURATIVE [None]
